FAERS Safety Report 6261710-7 (Version None)
Quarter: 2009Q3

REPORT INFORMATION
  Report Type: 
  Country: None (occurrence: None)
  Receive Date: 20090707
  Receipt Date: 20090707
  Transmission Date: 20100115
  Serious: Yes (Life-Threatening, Hospitalization)
  Sender: FDA-Public Use
  Company Number: None

PATIENT
  Age: 51 Year
  Sex: Female
  Weight: 59.3305 kg

DRUGS (1)
  1. LISINOPRIL [Suspect]
     Dosage: 20 MG DAILY PO
     Route: 048

REACTIONS (4)
  - ANGIOEDEMA [None]
  - DYSPNOEA [None]
  - SWELLING FACE [None]
  - SWOLLEN TONGUE [None]
